FAERS Safety Report 7178958-X (Version None)
Quarter: 2010Q4

REPORT INFORMATION
  Report Type: 
  Country: None (occurrence: None)
  Receive Date: 20101217
  Receipt Date: 20101217
  Transmission Date: 20110411
  Serious: No
  Sender: FDA-Public Use
  Company Number: None

PATIENT
  Age: 54 Year
  Sex: Male
  Weight: 74.8435 kg

DRUGS (1)
  1. PRASTERONE [Suspect]
     Indication: DEHYDROEPIANDROSTERONE DECREASED
     Dosage: 1 CAPSULE TWICE A DAY PO
     Route: 048
     Dates: start: 20101010, end: 20101206

REACTIONS (1)
  - BLOOD TESTOSTERONE INCREASED [None]
